FAERS Safety Report 20852914 (Version 1)
Quarter: 2022Q2

REPORT INFORMATION
  Report Type: Spontaneous
  Country: JP (occurrence: JP)
  Receive Date: 20220520
  Receipt Date: 20220520
  Transmission Date: 20220720
  Serious: Yes (Hospitalization, Other)
  Sender: FDA-Public Use
  Company Number: JP-MACLEODS PHARMACEUTICALS US LTD-MAC2022035609

PATIENT

DRUGS (2)
  1. NIACIN [Suspect]
     Active Substance: NIACIN
     Indication: Arthralgia
     Dosage: 3000 MILLIGRAM WITHIN 48 H
     Route: 065
  2. Thiamine supplements [Concomitant]
     Indication: Arthralgia
     Dosage: UNK
     Route: 065

REACTIONS (3)
  - Renal impairment [Recovered/Resolved]
  - Anaphylactic shock [Recovered/Resolved]
  - Overdose [Unknown]
